FAERS Safety Report 18097256 (Version 1)
Quarter: 2020Q3

REPORT INFORMATION
  Report Type: Spontaneous
  Country: US (occurrence: US)
  Receive Date: 20200730
  Receipt Date: 20200730
  Transmission Date: 20201103
  Serious: No
  Sender: FDA-Public Use
  Company Number: None

PATIENT
  Age: 48 Year
  Sex: Female

DRUGS (1)
  1. AMINOGENESIS 7 IN 1 HAND CONDITIONER CERTIFIED PHARMACEUTICAL GRADE 80% HAND SANITIZER [Suspect]
     Active Substance: ALCOHOL
     Indication: INFECTION PROPHYLAXIS
     Dates: start: 20200630, end: 20200702

REACTIONS (5)
  - Chest pain [None]
  - Suspected product quality issue [None]
  - Laboratory test abnormal [None]
  - Influenza like illness [None]
  - Product formulation issue [None]

NARRATIVE: CASE EVENT DATE: 20200703
